FAERS Safety Report 5380942-3 (Version None)
Quarter: 2007Q3

REPORT INFORMATION
  Report Type: 
  Country: None (occurrence: None)
  Receive Date: 20070706
  Receipt Date: 20070627
  Transmission Date: 20080115
  Serious: Yes (Life-Threatening)
  Sender: FDA-Public Use
  Company Number: AU-SANOFI-SYNTHELABO-A01200707000

PATIENT
  Sex: Female

DRUGS (3)
  1. LUVOX [Concomitant]
     Dosage: 300 MG
     Route: 048
     Dates: start: 20050915
  2. LAMICTAL [Concomitant]
     Dosage: 100 MG
     Route: 048
     Dates: start: 20060815, end: 20061215
  3. ZOLPIDEM TARTRATE [Suspect]
     Dosage: 10 MG
     Route: 048
     Dates: end: 20061225

REACTIONS (11)
  - ACCIDENTAL OVERDOSE [None]
  - AGITATION [None]
  - AMNESIA [None]
  - CONFUSIONAL STATE [None]
  - DRUG DEPENDENCE [None]
  - EATING DISORDER [None]
  - HALLUCINATION [None]
  - SELF MUTILATION [None]
  - SLEEP TALKING [None]
  - SOMNAMBULISM [None]
  - WEIGHT INCREASED [None]
